FAERS Safety Report 19676348 (Version 1)
Quarter: 2021Q3

REPORT INFORMATION
  Report Type: Spontaneous
  Country: DE (occurrence: DE)
  Receive Date: 20210809
  Receipt Date: 20210809
  Transmission Date: 20211014
  Serious: Yes (Hospitalization, Other)
  Sender: FDA-Public Use
  Company Number: DE-BRACCO-2021DE03376

PATIENT
  Age: 60 Year
  Sex: Female

DRUGS (3)
  1. GADOVIST [Suspect]
     Active Substance: GADOBUTROL
     Indication: MAGNETIC RESONANCE IMAGING HEPATOBILIARY
     Dosage: 7.5 ML, SINGLE
     Route: 065
     Dates: start: 20161221, end: 20161221
  2. GADOLINIUM [Suspect]
     Active Substance: GADOLINIUM
     Dosage: UNK
     Route: 065
  3. PROHANCE [Suspect]
     Active Substance: GADOTERIDOL
     Dosage: UNK, SINGLE
     Route: 065

REACTIONS (10)
  - Fatigue [Not Recovered/Not Resolved]
  - Nontherapeutic agent urine positive [Unknown]
  - Muscle spasms [Unknown]
  - Hypoaesthesia [Unknown]
  - Nontherapeutic agent blood positive [Unknown]
  - Headache [Not Recovered/Not Resolved]
  - Urticaria [Unknown]
  - Pyrexia [Unknown]
  - Myalgia [Not Recovered/Not Resolved]
  - Nausea [Unknown]

NARRATIVE: CASE EVENT DATE: 20161221
